FAERS Safety Report 15088016 (Version 1)
Quarter: 2018Q2

REPORT INFORMATION
  Report Type: Spontaneous
  Country: JP (occurrence: JP)
  Receive Date: 20180629
  Receipt Date: 20180629
  Transmission Date: 20180711
  Serious: Yes (Death)
  Sender: FDA-Public Use
  Company Number: JP-TEVA-2018-JP-916279

PATIENT
  Age: 71 Year
  Sex: Male

DRUGS (5)
  1. PROPETO [Concomitant]
     Route: 065
  2. FENTOS [Concomitant]
     Active Substance: FENTANYL
     Dosage: 6 MICROGRAM DAILY;
     Route: 065
  3. CELECOX [Concomitant]
     Active Substance: CELECOXIB
     Route: 065
  4. E-FEN BUCCAL [Suspect]
     Active Substance: FENTANYL CITRATE
     Indication: PAIN PROPHYLAXIS
     Dosage: 800 MICROGRAM DAILY;
     Route: 061
     Dates: start: 20180327
  5. ELNEOPA NF NO.2 [Concomitant]
     Route: 065

REACTIONS (1)
  - Death [Fatal]

NARRATIVE: CASE EVENT DATE: 201804
